FAERS Safety Report 5692917-5 (Version None)
Quarter: 2008Q2

REPORT INFORMATION
  Report Type: 
  Country: None (occurrence: None)
  Receive Date: 20080331
  Receipt Date: 20070307
  Transmission Date: 20081010
  Serious: Yes (Other)
  Sender: FDA-Public Use
  Company Number: HYCD20070002

PATIENT
  Age: 70 Year
  Sex: Male
  Weight: 86.1834 kg

DRUGS (9)
  1. HYCODAN [Suspect]
     Indication: COUGH
     Dosage: 10 MG, TID, PER ORAL
     Route: 048
     Dates: start: 19820101
  2. KEPPRA [Concomitant]
  3. COZAAR [Concomitant]
  4. COREG [Concomitant]
  5. LASIX [Concomitant]
  6. COUMADIN [Concomitant]
  7. ZOCOR [Concomitant]
  8. ZOLOFT [Concomitant]
  9. AMBIEN [Concomitant]

REACTIONS (3)
  - DRUG DEPENDENCE [None]
  - DRUG WITHDRAWAL SYNDROME [None]
  - THERAPEUTIC RESPONSE UNEXPECTED [None]
